FAERS Safety Report 21340731 (Version 3)
Quarter: 2022Q3

REPORT INFORMATION
  Report Type: Report from Study
  Country: US (occurrence: US)
  Receive Date: 20220916
  Receipt Date: 20220927
  Transmission Date: 20221026
  Serious: No
  Sender: FDA-Public Use
  Company Number: US-NOVARTISTESTPH-NVSC2022US209098

PATIENT
  Sex: Female

DRUGS (1)
  1. COSENTYX [Suspect]
     Active Substance: SECUKINUMAB
     Indication: Psoriatic arthropathy
     Dosage: 300 MG, QW (EVERY WEEK  5 WEEKS THEN EVERY 4 WEEKS)
     Route: 058
     Dates: start: 202208

REACTIONS (5)
  - Skin mass [Unknown]
  - Musculoskeletal stiffness [Unknown]
  - Pruritus [Recovered/Resolved]
  - Arthralgia [Recovering/Resolving]
  - Drug ineffective [Unknown]
